FAERS Safety Report 6639827-4 (Version None)
Quarter: 2010Q1

REPORT INFORMATION
  Report Type: 
  Country: None (occurrence: None)
  Receive Date: 20100315
  Receipt Date: 20100304
  Transmission Date: 20100710
  Serious: Yes (Hospitalization)
  Sender: FDA-Public Use
  Company Number: 96304

PATIENT
  Age: 43 Year
  Sex: Female

DRUGS (2)
  1. NOREPINEPHRINE BITARTRATE [Suspect]
     Indication: ABDOMINAL PAIN
     Dosage: 16MG/IV BOLUS
  2. NOREPINEPHRINE BITARTRATE [Suspect]
     Indication: VOMITING
     Dosage: 16MG/IV BOLUS

REACTIONS (18)
  - ACIDOSIS [None]
  - BLOOD PRESSURE DECREASED [None]
  - BRADYCARDIA [None]
  - CARDIOVASCULAR DISORDER [None]
  - CIRCULATORY COLLAPSE [None]
  - HAEMOPTYSIS [None]
  - HEPATIC VEIN DILATATION [None]
  - HYPERTENSION [None]
  - HYPOCAPNIA [None]
  - HYPOXIA [None]
  - LUNG DISORDER [None]
  - MEDICATION ERROR [None]
  - MYOCARDIAL ISCHAEMIA [None]
  - PULMONARY CONGESTION [None]
  - RIGHT VENTRICULAR FAILURE [None]
  - SMALL INTESTINAL OBSTRUCTION [None]
  - SUPRAVENTRICULAR TACHYCARDIA [None]
  - VASOCONSTRICTION [None]
